FAERS Safety Report 17009384 (Version 2)
Quarter: 2019Q4

REPORT INFORMATION
  Report Type: Report from Study
  Country: CA (occurrence: CA)
  Receive Date: 20191108
  Receipt Date: 20191210
  Transmission Date: 20200122
  Serious: Yes (Other)
  Sender: FDA-Public Use
  Company Number: CA-HLSUS-2019-CA-001500

PATIENT
  Age: 50 Year
  Sex: Male

DRUGS (1)
  1. CLOZARIL [Suspect]
     Active Substance: CLOZAPINE
     Route: 048

REACTIONS (4)
  - Blood thyroid stimulating hormone increased [Unknown]
  - Electrocardiogram PR shortened [Unknown]
  - Blood pressure increased [Unknown]
  - Ischaemia [Unknown]

NARRATIVE: CASE EVENT DATE: 20191029
